FAERS Safety Report 10198988 (Version 1)
Quarter: 2014Q2

REPORT INFORMATION
  Report Type: Spontaneous
  Country: SG (occurrence: SG)
  Receive Date: 20140527
  Receipt Date: 20140527
  Transmission Date: 20141212
  Serious: Yes (Other)
  Sender: FDA-Public Use
  Company Number: SG-BAYER-2014-073767

PATIENT
  Age: 32 Year
  Sex: Female

DRUGS (1)
  1. ACETYLSALICYLIC ACID (} 100 MG) [Suspect]
     Dosage: 100 MG, UNK
     Route: 048
     Dates: start: 20140412

REACTIONS (1)
  - Angioedema [Not Recovered/Not Resolved]
